FAERS Safety Report 5745154-X (Version None)
Quarter: 2008Q2

REPORT INFORMATION
  Report Type: 
  Country: None (occurrence: None)
  Receive Date: 20080521
  Receipt Date: 20080507
  Transmission Date: 20081010
  Serious: Yes (Other)
  Sender: FDA-Public Use
  Company Number: PHHY2008AU07386

PATIENT
  Age: 49 Year
  Sex: Male
  Weight: 72 kg

DRUGS (4)
  1. FAMVIR [Suspect]
     Indication: HEPATITIS
     Dosage: 1GM/DAY
     Route: 048
     Dates: end: 19970509
  2. NEORAL [Concomitant]
     Dosage: 200MG/DAY
     Route: 048
  3. PREDNISOLONE [Concomitant]
     Dosage: 5MG/DAY
     Route: 048
  4. ACTRAPID MC [Concomitant]
     Indication: DIABETES MELLITUS
     Dosage: 26 UNIT/DAY
     Route: 058

REACTIONS (3)
  - BIOPSY LIVER [None]
  - HBV DNA INCREASED [None]
  - HEPATITIS INFECTIOUS [None]
